FAERS Safety Report 22765888 (Version 3)
Quarter: 2023Q4

REPORT INFORMATION
  Report Type: Report from Study
  Country: FR (occurrence: FR)
  Receive Date: 20230731
  Receipt Date: 20231005
  Transmission Date: 20240109
  Serious: Yes (Other)
  Sender: FDA-Public Use
  Company Number: FR-AMGEN-FRACT2023133414

PATIENT
  Age: 59 Year
  Sex: Female
  Weight: 65 kg

DRUGS (19)
  1. CARFILZOMIB [Suspect]
     Active Substance: CARFILZOMIB
     Indication: Plasma cell myeloma
     Dosage: 34 MILLIGRAM, PER CHEMO REGIM
     Route: 042
     Dates: start: 20221201
  2. CARFILZOMIB [Suspect]
     Active Substance: CARFILZOMIB
     Dosage: 94 MILLIGRAM, PER CHEMO REGIM
     Route: 042
     Dates: start: 20230727
  3. POMALIDOMIDE [Suspect]
     Active Substance: POMALIDOMIDE
     Indication: Plasma cell myeloma
     Dosage: 3 MILLIGRAM, PER CHEMO REGIM
     Route: 048
     Dates: start: 20221201
  4. ISATUXIMAB [Suspect]
     Active Substance: ISATUXIMAB
     Indication: Plasma cell myeloma
     Dosage: 660 MILLIGRAM, PER CHEMO REGIM
     Route: 042
     Dates: start: 20221201
  5. FILGRASTIM [Concomitant]
     Active Substance: FILGRASTIM
     Dosage: UNK
  6. DEXAMETHASONE [Concomitant]
     Active Substance: DEXAMETHASONE
     Dosage: 40 MILLIGRAM
     Dates: start: 20221201
  7. VALACYCLOVIR HYDROCHLORIDE [Concomitant]
     Active Substance: VALACYCLOVIR HYDROCHLORIDE
     Indication: Prophylaxis
     Dosage: 500 MILLIGRAM
     Dates: start: 20190823
  8. LENOGRASTIM [Concomitant]
     Active Substance: LENOGRASTIM
     Indication: Neutropenia
     Dosage: 3 INJECTIONS, UNK
     Dates: start: 20221223
  9. CALCIUM CARBONATE\CHOLECALCIFEROL [Concomitant]
     Active Substance: CALCIUM CARBONATE\CHOLECALCIFEROL
     Indication: Prophylaxis
     Dosage: 500 MILLIGRAM X 2/5
     Dates: start: 20190823
  10. PANTOPRAZOLE [Concomitant]
     Active Substance: PANTOPRAZOLE
     Indication: Prophylaxis
     Dosage: 20 MILLIGRAM /5
     Dates: start: 20190823
  11. ASPIRIN DL-LYSINE [Concomitant]
     Active Substance: ASPIRIN DL-LYSINE
     Indication: Prophylaxis
     Dosage: 100 MILLIGRAM /5
     Dates: start: 20190823
  12. AMOXICILLIN [Concomitant]
     Active Substance: AMOXICILLIN
     Indication: Prophylaxis
     Dosage: 500 MILLIGRAM X2
     Dates: start: 20190823
  13. BACTRIM [Concomitant]
     Active Substance: SULFAMETHOXAZOLE\TRIMETHOPRIM
     Indication: Prophylaxis
     Dosage: 80 MILLIGRAM
     Dates: start: 20221201
  14. VALACYCLOVIR HYDROCHLORIDE [Concomitant]
     Active Substance: VALACYCLOVIR HYDROCHLORIDE
     Dosage: UNK
  15. ASPIRIN [Concomitant]
     Active Substance: ASPIRIN
     Dosage: UNK
  16. CALCIUM [Concomitant]
     Active Substance: CALCIUM
     Dosage: UNK
  17. CHOLECALCIFEROL [Concomitant]
     Active Substance: CHOLECALCIFEROL
     Dosage: UNK
  18. SULFAMETHOXAZOLE AND TRIMETHOPRIM [Concomitant]
     Active Substance: SULFAMETHOXAZOLE\TRIMETHOPRIM
     Dosage: UNK
  19. ZOLEDRONIC ACID [Concomitant]
     Active Substance: ZOLEDRONIC ACID
     Dosage: UNK

REACTIONS (1)
  - Lymphopenia [Not Recovered/Not Resolved]

NARRATIVE: CASE EVENT DATE: 20230725
